FAERS Safety Report 16929840 (Version 1)
Quarter: 2019Q4

REPORT INFORMATION
  Report Type: Spontaneous
  Country: US (occurrence: US)
  Receive Date: 20191017
  Receipt Date: 20191017
  Transmission Date: 20200122
  Serious: Yes (Other)
  Sender: FDA-Public Use
  Company Number: None

PATIENT
  Age: 51 Year
  Sex: Female

DRUGS (1)
  1. SERMORELIN [Suspect]
     Active Substance: SERMORELIN
     Indication: PRODUCT USED FOR UNKNOWN INDICATION
     Route: 058
     Dates: start: 20190617

REACTIONS (3)
  - Fluid retention [None]
  - Back pain [None]
  - Weight increased [None]

NARRATIVE: CASE EVENT DATE: 20190617
